FAERS Safety Report 8806144 (Version 3)
Quarter: 2013Q1

REPORT INFORMATION
  Report Type: Spontaneous
  Country: IE (occurrence: IE)
  Receive Date: 20120925
  Receipt Date: 20130125
  Transmission Date: 20140127
  Serious: Yes (Death, Hospitalization, Other)
  Sender: FDA-Public Use
  Company Number: PHFR2012IE005102

PATIENT
  Age: 65 Year
  Sex: Male

DRUGS (5)
  1. CLOZARIL [Suspect]
     Indication: SCHIZOPHRENIA
     Route: 048
     Dates: start: 20120827
  2. CLOZARIL [Suspect]
     Dosage: 400 MG, UNK
     Dates: start: 20120921
  3. CLOZAPINE [Suspect]
     Dosage: UNK UKN, UNK
     Route: 048
     Dates: start: 20120904
  4. PLENDIL [Concomitant]
     Dosage: 5 MG, DAILY DOSE
     Route: 048
     Dates: start: 20120809
  5. SLOW K [Concomitant]
     Dosage: UNK UKN, (TID)
     Route: 048

REACTIONS (11)
  - Myocardial ischaemia [Fatal]
  - Myocardial infarction [Fatal]
  - Chest pain [Fatal]
  - Blood potassium decreased [Unknown]
  - Gait disturbance [Unknown]
  - Lower respiratory tract infection [Unknown]
  - Malaise [Unknown]
  - White blood cell count increased [Unknown]
  - Circulatory collapse [Unknown]
  - Aortic aneurysm [Unknown]
  - Abdominal distension [Unknown]
